FAERS Safety Report 23069172 (Version 3)
Quarter: 2023Q4

REPORT INFORMATION
  Report Type: Spontaneous
  Country: JP (occurrence: JP)
  Receive Date: 20231016
  Receipt Date: 20231102
  Transmission Date: 20240110
  Serious: Yes (Other)
  Sender: FDA-Public Use
  Company Number: JP-PFIZER INC-PV202300165353

PATIENT
  Age: 59 Year
  Sex: Female

DRUGS (1)
  1. SULFASALAZINE [Suspect]
     Active Substance: SULFASALAZINE
     Indication: Colitis ulcerative
     Dosage: UNK
     Route: 048
     Dates: start: 1994, end: 20231019

REACTIONS (21)
  - Haematochezia [Unknown]
  - Anal abscess [Unknown]
  - Melaena [Unknown]
  - Drug ineffective [Not Recovered/Not Resolved]
  - Diarrhoea [Unknown]
  - Constipation [Unknown]
  - Haemorrhoids [Unknown]
  - Anal fistula [Unknown]
  - Purulence [Unknown]
  - Abdominal pain [Unknown]
  - Pyrexia [Unknown]
  - Malaise [Unknown]
  - Dizziness [Unknown]
  - Palpitations [Unknown]
  - Decreased appetite [Unknown]
  - Weight decreased [Unknown]
  - Anaemia [Unknown]
  - Chromaturia [Unknown]
  - Dysphagia [Unknown]
  - Product size issue [Unknown]
  - Maternal exposure during pregnancy [Unknown]
